FAERS Safety Report 15966289 (Version 2)
Quarter: 2019Q1

REPORT INFORMATION
  Report Type: Spontaneous
  Country: US (occurrence: US)
  Receive Date: 20190215
  Receipt Date: 20190222
  Transmission Date: 20190418
  Serious: No
  Sender: FDA-Public Use
  Company Number: US-SUNOVION-2019SUN000439

PATIENT
  Sex: Male

DRUGS (2)
  1. APTIOM [Suspect]
     Active Substance: ESLICARBAZEPINE ACETATE
     Dosage: 800 MG, HS (TWO 400 MG)
     Route: 048
  2. ONFI [Concomitant]
     Active Substance: CLOBAZAM
     Dosage: 15 MG, HS

REACTIONS (1)
  - Hypersomnia [Unknown]
